FAERS Safety Report 6983554-0 (Version None)
Quarter: 2010Q3

REPORT INFORMATION
  Report Type: 
  Country: None (occurrence: None)
  Receive Date: 20100914
  Receipt Date: 20081029
  Transmission Date: 20110219
  Serious: No
  Sender: FDA-Public Use
  Company Number: US-WYE-H06092408

PATIENT
  Age: 17 Year
  Sex: Male
  Weight: 63.56 kg

DRUGS (1)
  1. ADVIL LIQUI-GELS [Suspect]
     Dosage: UNKNOWN
     Route: 048
     Dates: start: 20080901

REACTIONS (4)
  - DYSGEUSIA [None]
  - PRODUCT QUALITY ISSUE [None]
  - RETCHING [None]
  - THROAT IRRITATION [None]
